FAERS Safety Report 6284484-2 (Version None)
Quarter: 2009Q3

REPORT INFORMATION
  Report Type: 
  Country: None (occurrence: None)
  Receive Date: 20090727
  Receipt Date: 20090714
  Transmission Date: 20100115
  Serious: Yes (Other)
  Sender: FDA-Public Use
  Company Number: IT-AMGEN-UK355658

PATIENT
  Sex: Male
  Weight: 64 kg

DRUGS (3)
  1. VECTIBIX [Suspect]
     Indication: COLORECTAL CANCER
     Route: 042
     Dates: start: 20080407, end: 20080923
  2. AMLODIPINE [Concomitant]
     Route: 048
     Dates: start: 19960101
  3. ENALAPRIL MALEATE [Concomitant]
     Route: 048
     Dates: start: 19960101

REACTIONS (1)
  - FOLLICULITIS [None]
